FAERS Safety Report 4662309-6 (Version None)
Quarter: 2005Q2

REPORT INFORMATION
  Report Type: 
  Country: None (occurrence: None)
  Receive Date: 20050512
  Receipt Date: 20050425
  Transmission Date: 20051028
  Serious: Yes (Hospitalization, Other)
  Sender: FDA-Public Use
  Company Number: USA050496551

PATIENT
  Age: 68 Year
  Sex: Female
  Weight: 59 kg

DRUGS (3)
  1. HUMALOG [Suspect]
     Indication: DIABETES MELLITUS
     Dosage: 21 U DAY
     Dates: start: 20000101
  2. TRICOR (FENOIFIBRATE) [Concomitant]
  3. SLO-MAG (MAGNESIUM CHLORIDE ANHYDROUS) [Concomitant]

REACTIONS (3)
  - BLADDER CANCER [None]
  - PHARMACEUTICAL PRODUCT COMPLAINT [None]
  - PNEUMONIA [None]
